FAERS Safety Report 6589166-5 (Version None)
Quarter: 2010Q1

REPORT INFORMATION
  Report Type: 
  Country: None (occurrence: None)
  Receive Date: 20100203
  Receipt Date: 20091014
  Transmission Date: 20100710
  Serious: Yes (Other)
  Sender: FDA-Public Use
  Company Number: 2009UF0226FU1

PATIENT
  Age: 8 Year
  Sex: Female

DRUGS (2)
  1. ULESFIA [Suspect]
     Indication: LICE INFESTATION
     Dosage: 2 BOTTLES, ONCE 1 BOTTLE, ONCE
     Dates: start: 20090930, end: 20090930
  2. ULESFIA [Suspect]
     Indication: LICE INFESTATION
     Dates: start: 20091008, end: 20091008

REACTIONS (2)
  - DRUG ADMINISTRATION ERROR [None]
  - DRUG INEFFECTIVE [None]
